FAERS Safety Report 8184331-8 (Version None)
Quarter: 2012Q1

REPORT INFORMATION
  Report Type: 
  Country: None (occurrence: None)
  Receive Date: 20120305
  Receipt Date: 20120301
  Transmission Date: 20120608
  Serious: Yes (Hospitalization)
  Sender: FDA-Public Use
  Company Number: US-ACTELION-A-NJ2012-61049

PATIENT

DRUGS (4)
  1. TRACLEER [Suspect]
     Indication: PULMONARY ARTERIAL HYPERTENSION
     Dosage: UNK
     Route: 048
     Dates: start: 20090205
  2. OXYGEN [Concomitant]
  3. PLAVIX [Concomitant]
  4. CHEMOTHERAPEUTICS [Suspect]

REACTIONS (7)
  - FLUID RETENTION [None]
  - RESPIRATORY DISTRESS [None]
  - BLOOD PRESSURE DECREASED [None]
  - DYSPNOEA [None]
  - LUNG NEOPLASM MALIGNANT [None]
  - SARCOMA [None]
  - OXYGEN SATURATION DECREASED [None]
